FAERS Safety Report 9344906 (Version 1)
Quarter: 2013Q2

REPORT INFORMATION
  Report Type: Spontaneous
  Country: DE (occurrence: DE)
  Receive Date: 20130612
  Receipt Date: 20130612
  Transmission Date: 20140414
  Serious: Yes (Hospitalization, Congenital Anomaly, Other)
  Sender: FDA-Public Use
  Company Number: DE-ASTRAZENECA-2013SE40397

PATIENT
  Age: 0 Week
  Sex: Female
  Weight: 2.9 kg

DRUGS (3)
  1. OMEPRAZOLE [Suspect]
     Indication: GASTROOESOPHAGEAL REFLUX DISEASE
     Route: 064
     Dates: start: 20110421, end: 20110519
  2. FOLIO FORTE [Suspect]
     Indication: PROPHYLAXIS OF NEURAL TUBE DEFECT
     Route: 064
     Dates: start: 20110306
  3. TEPILTA [Concomitant]
     Indication: GASTROOESOPHAGEAL REFLUX DISEASE
     Route: 064
     Dates: start: 20110421, end: 20110428

REACTIONS (7)
  - Congenital arteriovenous fistula [Not Recovered/Not Resolved]
  - Atrial septal defect [Recovered/Resolved]
  - Hypotonia neonatal [Unknown]
  - Apnoea neonatal [Unknown]
  - Bradycardia neonatal [Unknown]
  - Hyperbilirubinaemia neonatal [Unknown]
  - Motor developmental delay [Unknown]
